FAERS Safety Report 4582312-4 (Version None)
Quarter: 2005Q1

REPORT INFORMATION
  Report Type: 
  Country: None (occurrence: None)
  Receive Date: 20050127
  Receipt Date: 20040927
  Transmission Date: 20050727
  Serious: No
  Sender: FDA-Public Use
  Company Number: USA040979402

PATIENT
  Age: 9 Year
  Sex: Female
  Weight: 33 kg

DRUGS (2)
  1. STRATTERA [Suspect]
     Indication: ATTENTION DEFICIT/HYPERACTIVITY DISORDER
     Dosage: 25 MG AT BEDTIME
     Dates: start: 20040626
  2. ZOLOFT [Concomitant]

REACTIONS (8)
  - CRYING [None]
  - DECREASED APPETITE [None]
  - EPISTAXIS [None]
  - INSOMNIA [None]
  - IRRITABILITY [None]
  - MOOD SWINGS [None]
  - SCREAMING [None]
  - TIC [None]
